FAERS Safety Report 16559881 (Version 1)
Quarter: 2019Q3

REPORT INFORMATION
  Report Type: Spontaneous
  Country: US (occurrence: US)
  Receive Date: 20190711
  Receipt Date: 20190711
  Transmission Date: 20191004
  Serious: No
  Sender: FDA-Public Use
  Company Number: US-HORIZON-ACT-0097-2019

PATIENT
  Age: 35 Year
  Sex: Female

DRUGS (3)
  1. ACTIMMUNE [Suspect]
     Active Substance: INTERFERON GAMMA-1B
     Indication: CHRONIC GRANULOMATOUS DISEASE
     Dosage: 0.4 ML THREE TIMES A WEEK
     Route: 058
     Dates: start: 20180711
  2. VORICONAZOLE. [Concomitant]
     Active Substance: VORICONAZOLE
  3. BACTRIM [Concomitant]
     Active Substance: SULFAMETHOXAZOLE\TRIMETHOPRIM

REACTIONS (2)
  - Pain in extremity [Unknown]
  - Arthralgia [Unknown]
